FAERS Safety Report 7505964-5 (Version None)
Quarter: 2011Q2

REPORT INFORMATION
  Report Type: 
  Country: None (occurrence: None)
  Receive Date: 20110411
  Receipt Date: 20100405
  Transmission Date: 20111010
  Serious: Yes (Hospitalization)
  Sender: FDA-Public Use
  Company Number: AE 2010-058

PATIENT
  Age: 53 Year
  Sex: Female

DRUGS (10)
  1. COUMADIN [Concomitant]
  2. LACTULOSE [Concomitant]
  3. FAZACLO ODT [Suspect]
     Indication: SCHIZOPHRENIA, PARANOID TYPE
     Dosage: 200MG DAILY PO
     Route: 048
     Dates: start: 20100205
  4. DEPAKOTE [Concomitant]
  5. NEXIUM [Concomitant]
  6. FERROUS SULFATE TAB [Concomitant]
  7. PERPHENAZINE [Concomitant]
  8. ATIVAN [Concomitant]
  9. TRAZODONE HCL [Concomitant]
  10. COGENTIN [Concomitant]

REACTIONS (2)
  - FALL [None]
  - MENTAL STATUS CHANGES [None]
